FAERS Safety Report 8354963-2 (Version None)
Quarter: 2012Q2

REPORT INFORMATION
  Report Type: 
  Country: None (occurrence: None)
  Receive Date: 20120511
  Receipt Date: 20120504
  Transmission Date: 20120825
  Serious: Yes (Congenital Anomaly)
  Sender: FDA-Public Use
  Company Number: DE-TEVA-336876GER

PATIENT
  Age: 0 Year
  Sex: Male
  Weight: 3.145 kg

DRUGS (2)
  1. PRIMIDONE [Suspect]
     Route: 064
  2. VALPRO [Suspect]
     Route: 064

REACTIONS (1)
  - SYNDACTYLY [None]
